FAERS Safety Report 8522216-5 (Version None)
Quarter: 2012Q3

REPORT INFORMATION
  Report Type: 
  Country: None (occurrence: None)
  Receive Date: 20120719
  Receipt Date: 20120705
  Transmission Date: 20120928
  Serious: Yes (Life-Threatening, Hospitalization, Other)
  Sender: FDA-Public Use
  Company Number: CH-ELI_LILLY_AND_COMPANY-CH201207001665

PATIENT
  Age: 43 Year
  Sex: Male
  Weight: 72 kg

DRUGS (4)
  1. FLUOXETINE HYDROCHLORIDE [Suspect]
     Indication: BURNOUT SYNDROME
     Dosage: UNK
     Dates: start: 20120301, end: 20120419
  2. IBUPROFEN [Concomitant]
     Indication: RIB FRACTURE
     Dosage: 400 MG, QD
     Route: 048
     Dates: start: 20120303, end: 20120419
  3. FRAGMIN [Concomitant]
     Dosage: 1 DF, QD
     Route: 030
     Dates: start: 20120303
  4. METAMIZOL                          /06276702/ [Concomitant]
     Indication: RIB FRACTURE
     Dosage: 500 MG, BID
     Route: 048
     Dates: start: 20120303, end: 20120419

REACTIONS (7)
  - AGRANULOCYTOSIS [None]
  - NECROTISING FASCIITIS [None]
  - ERYSIPELAS [None]
  - APHTHOUS STOMATITIS [None]
  - INJECTION SITE INFECTION [None]
  - OFF LABEL USE [None]
  - SEPSIS [None]
